FAERS Safety Report 8479438-1 (Version None)
Quarter: 2012Q2

REPORT INFORMATION
  Report Type: 
  Country: None (occurrence: None)
  Receive Date: 20120629
  Receipt Date: 20120620
  Transmission Date: 20120825
  Serious: Yes (Life-Threatening)
  Sender: FDA-Public Use
  Company Number: GB-CELGENEUS-167-21880-12062948

PATIENT
  Age: 53 Year

DRUGS (6)
  1. FUROSEMIDE [Concomitant]
     Route: 048
  2. DEXAMETHASONE [Concomitant]
     Route: 048
  3. OMEPRAZOLE [Concomitant]
     Route: 048
  4. CYCLIZINE [Concomitant]
     Route: 048
  5. ALLOPURINOL [Concomitant]
     Route: 048
  6. REVLIMID [Suspect]
     Dosage: 15 MILLIGRAM
     Route: 048
     Dates: start: 20120507

REACTIONS (2)
  - CORONARY ARTERY THROMBOSIS [None]
  - ACUTE MYOCARDIAL INFARCTION [None]
